FAERS Safety Report 5188257-3 (Version None)
Quarter: 2006Q4

REPORT INFORMATION
  Report Type: 
  Country: None (occurrence: None)
  Receive Date: 20061214
  Receipt Date: 20061128
  Transmission Date: 20070319
  Serious: Yes (Hospitalization, Disabling)
  Sender: FDA-Public Use
  Company Number: 149812ISR

PATIENT
  Age: 35 Year
  Sex: Female

DRUGS (2)
  1. CISPLATIN [Suspect]
     Indication: ENDOMETRIAL CANCER
     Dosage: CYCLE 2
     Route: 042
     Dates: start: 20060919
  2. DOXORUBICIN HCL [Concomitant]

REACTIONS (4)
  - APHASIA [None]
  - COORDINATION ABNORMAL [None]
  - DYSARTHRIA [None]
  - ENCEPHALOPATHY [None]
